FAERS Safety Report 10501561 (Version 1)
Quarter: 2014Q4

REPORT INFORMATION
  Report Type: Spontaneous
  Country: FR (occurrence: FR)
  Receive Date: 20141007
  Receipt Date: 20141007
  Transmission Date: 20150528
  Serious: Yes (Death)
  Sender: FDA-Public Use
  Company Number: FR-SA-2014SA134808

PATIENT
  Age: 72 Year
  Sex: Male

DRUGS (1)
  1. LANTUS [Suspect]
     Active Substance: INSULIN GLARGINE
     Indication: DIABETES MELLITUS
     Dosage: DOSE: INCREASE IN DAILY DOSE UP TO 76 IU?DAILY DOSE: UP TO 76 IU
     Route: 058
     Dates: start: 201408

REACTIONS (3)
  - Cerebral haemorrhage [Fatal]
  - Drug ineffective [Unknown]
  - Hyperglycaemia [Unknown]
